FAERS Safety Report 13868464 (Version 1)
Quarter: 2017Q3

REPORT INFORMATION
  Report Type: Spontaneous
  Country: US (occurrence: US)
  Receive Date: 20170815
  Receipt Date: 20170815
  Transmission Date: 20171127
  Serious: No
  Sender: FDA-Public Use
  Company Number: PHEH2017US024909

PATIENT
  Sex: Male

DRUGS (1)
  1. TRIAMCINOLONE ACETONIDE. [Suspect]
     Active Substance: TRIAMCINOLONE ACETONIDE
     Indication: PRODUCT USED FOR UNKNOWN INDICATION
     Dosage: TWO APPLICATIONS
     Route: 061

REACTIONS (6)
  - Contusion [Recovering/Resolving]
  - Mouth ulceration [Recovering/Resolving]
  - Accidental exposure to product by child [Unknown]
  - Mouth swelling [Recovering/Resolving]
  - Chapped lips [Recovering/Resolving]
  - Product use issue [Unknown]
